FAERS Safety Report 10386047 (Version 1)
Quarter: 2014Q1

REPORT INFORMATION
  Report Type: Spontaneous
  Country: US (occurrence: None)
  Receive Date: 20140306
  Receipt Date: 20140306
  Transmission Date: 20141002
  Serious: Yes (Other)
  Sender: FDA-Public Use
  Company Number: 163-21880-13071595

PATIENT
  Age: 66 Year
  Sex: Female
  Weight: 70.8 kg

DRUGS (10)
  1. REVLIMID ( LENALIDOMIDE) ( 25 MILLIGRAM, CAPSULES) [Suspect]
     Indication: PLASMA CELL MYELOMA
     Route: 048
     Dates: start: 201107
  2. KETOCONAZOLE (CREAM) [Concomitant]
  3. MULTIVITAMINS (TABLETS) [Concomitant]
  4. DESONIDE (CREAM) [Concomitant]
  5. VITAMIN B COMPLEX (B-KOMPLEX ^LECIVA^) [Concomitant]
  6. ESTRADIOL [Concomitant]
  7. BABY ASPIRIN (ACETYLSALICYLIC ACID) [Concomitant]
  8. TRAMADOL HCL [Concomitant]
  9. VITAMIN D (ERGOCALCIFEROL) [Concomitant]
  10. CITRACAL PLUS (CALCIUM CITRATE W/ COLECALCIFEROL) [Concomitant]

REACTIONS (1)
  - Gastric disorder [None]
